FAERS Safety Report 9467909 (Version 1)
Quarter: 2013Q3

REPORT INFORMATION
  Report Type: Spontaneous
  Country: US (occurrence: None)
  Receive Date: 20130819
  Receipt Date: 20130819
  Transmission Date: 20140515
  Serious: No
  Sender: FDA-Public Use
  Company Number: None

PATIENT
  Sex: 0

DRUGS (3)
  1. ATROPINE [Suspect]
     Route: 047
  2. TROPICAMIDE [Suspect]
     Route: 047
  3. CYCLOPENTOLATE HCL [Suspect]
     Route: 047

REACTIONS (2)
  - Medication error [None]
  - Circumstance or information capable of leading to medication error [None]
